FAERS Safety Report 12391904 (Version 1)
Quarter: 2016Q2

REPORT INFORMATION
  Report Type: Spontaneous
  Country: GB (occurrence: GB)
  Receive Date: 20160523
  Receipt Date: 20160523
  Transmission Date: 20160815
  Serious: Yes (Hospitalization)
  Sender: FDA-Public Use
  Company Number: GB-ABBVIE-16K-167-1631557-00

PATIENT
  Age: 43 Year
  Sex: Male

DRUGS (1)
  1. HUMIRA [Suspect]
     Active Substance: ADALIMUMAB
     Indication: PSORIASIS
     Route: 058
     Dates: start: 201209

REACTIONS (6)
  - Hypertension [Recovered/Resolved]
  - Basal ganglia haemorrhage [Recovered/Resolved]
  - Intracranial aneurysm [Recovered/Resolved]
  - Cerebrovascular accident [Recovered/Resolved]
  - Blood pressure abnormal [Unknown]
  - Psoriasis [Unknown]
